FAERS Safety Report 7449535-8 (Version None)
Quarter: 2011Q2

REPORT INFORMATION
  Report Type: 
  Country: None (occurrence: None)
  Receive Date: 20110502
  Receipt Date: 20110421
  Transmission Date: 20111010
  Serious: Yes (Hospitalization)
  Sender: FDA-Public Use
  Company Number: CA-BAYER-2011-036199

PATIENT
  Age: 73 Year
  Sex: Male

DRUGS (10)
  1. VALSARTAN [Concomitant]
     Indication: HYPERTENSION
     Dosage: 80 MG, QD
     Dates: start: 20050301
  2. CHLORHEXIDINE [CHLORHEXIDINE] [Concomitant]
     Indication: MOUTH HAEMORRHAGE
     Dosage: 15 ML, BID
     Dates: start: 20110221, end: 20110308
  3. SORAFENIB (RAF KINASE INHIBITOR) [Suspect]
     Dosage: 200 MG, BID
     Route: 048
     Dates: start: 20110314, end: 20110324
  4. CIL NET [Concomitant]
     Indication: PROPHYLAXIS
     Dosage: UNK UNK, PRN
     Dates: start: 20101125
  5. SORAFENIB (RAF KINASE INHIBITOR) [Suspect]
     Indication: HEPATIC NEOPLASM MALIGNANT
     Dosage: 400 MG, BID
     Route: 048
     Dates: start: 20110308, end: 20110313
  6. ESOMEPRAZOLE MAGNESIUM [Concomitant]
     Indication: DYSPEPSIA
     Dosage: 40 MG, QD
     Dates: start: 20101224
  7. TRAZODONE HCL [Concomitant]
     Indication: INSOMNIA
     Dosage: 50 MG, QD
     Dates: start: 20100330
  8. PHOSPHATE NOVARTIS [Concomitant]
     Indication: HYPOPHOSPHATAEMIA
     Dosage: 500 MG, BID
     Dates: start: 20110321
  9. ASPIRIN [Concomitant]
     Indication: PROPHYLAXIS
     Dosage: 80 MG, QD
     Dates: start: 20100717
  10. DICLOFENAC [DICLOFENAC] [Concomitant]
     Indication: BACK PAIN
     Dosage: UNK UNK, PRN
     Dates: start: 20101101

REACTIONS (1)
  - CONFUSIONAL STATE [None]
